FAERS Safety Report 22292192 (Version 1)
Quarter: 2023Q2

REPORT INFORMATION
  Report Type: Spontaneous
  Country: US (occurrence: US)
  Receive Date: 20230508
  Receipt Date: 20230508
  Transmission Date: 20230722
  Serious: No
  Sender: FDA-Public Use
  Company Number: US-JNJFOC-20230463089

PATIENT
  Age: 47 Year

DRUGS (1)
  1. RYBREVANT [Suspect]
     Active Substance: AMIVANTAMAB-VMJW
     Indication: Metastases to bone
     Route: 065

REACTIONS (2)
  - Hypertension [Unknown]
  - Infusion related reaction [Unknown]
